FAERS Safety Report 7995296-3 (Version None)
Quarter: 2011Q4

REPORT INFORMATION
  Report Type: 
  Country: None (occurrence: None)
  Receive Date: 20111220
  Receipt Date: 20111205
  Transmission Date: 20120403
  Serious: Yes (Death, Other)
  Sender: FDA-Public Use
  Company Number: TR-WATSON-2011-21398

PATIENT
  Age: 24 Year
  Sex: Male

DRUGS (2)
  1. ETOPOSIDE [Suspect]
     Indication: MEDULLOBLASTOMA
  2. CARBOPLATIN [Suspect]
     Indication: MEDULLOBLASTOMA

REACTIONS (3)
  - HYPERBILIRUBINAEMIA [None]
  - MEDULLOBLASTOMA RECURRENT [None]
  - PANCYTOPENIA [None]
